FAERS Safety Report 16252639 (Version 1)
Quarter: 2019Q2

REPORT INFORMATION
  Report Type: Spontaneous
  Country: US (occurrence: US)
  Receive Date: 20190326
  Receipt Date: 20190326
  Transmission Date: 20190711
  Serious: Yes (Hospitalization, Disabling)
  Sender: FDA-Public Use
  Company Number: None

PATIENT

DRUGS (1)
  1. LATUDA [Suspect]
     Active Substance: LURASIDONE HYDROCHLORIDE
     Indication: SCHIZOPHRENIA
     Dosage: QUANTITY:250 MG MILLIGRAM(S); AT BEDTIME?
     Route: 048
     Dates: start: 201507, end: 201603

REACTIONS (4)
  - Coma [None]
  - Hallucination [None]
  - Suicidal ideation [None]
  - Drooling [None]

NARRATIVE: CASE EVENT DATE: 2015
